FAERS Safety Report 7274997-9 (Version None)
Quarter: 2011Q1

REPORT INFORMATION
  Report Type: 
  Country: None (occurrence: None)
  Receive Date: 20110203
  Receipt Date: 20110203
  Transmission Date: 20110831
  Serious: Yes (Hospitalization)
  Sender: FDA-Public Use
  Company Number: None

PATIENT
  Age: 16 Month
  Sex: Female
  Weight: 9.4 kg

DRUGS (1)
  1. SELECT ALCOHOL PREP PAD 2 PLY MEDIUM TRIAD [Suspect]
     Indication: THERAPEUTIC SKIN CARE TOPICAL
     Dosage: TOP ONE TIME USE
     Route: 061
     Dates: start: 20110112

REACTIONS (5)
  - PRODUCT QUALITY ISSUE [None]
  - PRODUCT CONTAMINATION MICROBIAL [None]
  - INJECTION SITE ABSCESS [None]
  - STAPHYLOCOCCUS TEST POSITIVE [None]
  - BACILLUS INFECTION [None]
